FAERS Safety Report 25608376 (Version 4)
Quarter: 2025Q3

REPORT INFORMATION
  Report Type: Spontaneous
  Country: CA (occurrence: CA)
  Receive Date: 20250726
  Receipt Date: 20250912
  Transmission Date: 20251021
  Serious: Yes (Hospitalization, Other)
  Sender: CELLTRION
  Company Number: CA-CELLTRION INC.-2025CA024889

PATIENT

DRUGS (1)
  1. INFLIXIMAB [Suspect]
     Active Substance: INFLIXIMAB
     Indication: Colitis ulcerative
     Dosage: 400 MG EVERY 4 WEEKS
     Route: 042
     Dates: start: 20250623

REACTIONS (5)
  - Cholelithiasis [Unknown]
  - Endometriosis [Recovering/Resolving]
  - Nephrolithiasis [Unknown]
  - Cystitis [Unknown]
  - Intentional dose omission [Unknown]

NARRATIVE: CASE EVENT DATE: 20250820
